FAERS Safety Report 16974895 (Version 1)
Quarter: 2019Q4

REPORT INFORMATION
  Report Type: Spontaneous
  Country: CA (occurrence: CA)
  Receive Date: 20191030
  Receipt Date: 20191030
  Transmission Date: 20200122
  Serious: Yes (Death)
  Sender: FDA-Public Use
  Company Number: CA-ACTELION-A-US2019-197413

PATIENT
  Age: 74 Year
  Sex: Female
  Weight: 79 kg

DRUGS (13)
  1. CIPRALEX [Concomitant]
     Active Substance: ESCITALOPRAM OXALATE
  2. OXYGEN. [Concomitant]
     Active Substance: OXYGEN
  3. SILDENAFIL. [Suspect]
     Active Substance: SILDENAFIL
     Indication: PULMONARY ARTERIAL HYPERTENSION
     Dosage: 20 MG, TID
     Route: 048
  4. CITALOPRAM [Concomitant]
     Active Substance: CITALOPRAM HYDROBROMIDE
  5. ERGOCALCIFEROL. [Concomitant]
     Active Substance: ERGOCALCIFEROL
  6. OPSUMIT [Suspect]
     Active Substance: MACITENTAN
     Indication: PULMONARY ARTERIAL HYPERTENSION
     Dosage: 20 MG, QD
     Route: 048
  7. ASA [Concomitant]
     Active Substance: ASPIRIN
  8. PREVACID [Concomitant]
     Active Substance: LANSOPRAZOLE
  9. CYANOCOBALAMIN W/FERRIC PYROPHOSPHA [Concomitant]
  10. CALCIUM GLUCONATE. [Concomitant]
     Active Substance: CALCIUM GLUCONATE
  11. SLOW K [Concomitant]
     Active Substance: POTASSIUM CHLORIDE
  12. LASIX [Concomitant]
     Active Substance: FUROSEMIDE
  13. MIDODRINE [Concomitant]
     Active Substance: MIDODRINE

REACTIONS (16)
  - Decreased appetite [Unknown]
  - Fluid retention [Unknown]
  - Orthopnoea [Unknown]
  - Scleroderma [Unknown]
  - Death [Fatal]
  - Cardiovascular insufficiency [Unknown]
  - Cough [Unknown]
  - Weight decreased [Unknown]
  - Disease progression [Unknown]
  - Dyspnoea [Unknown]
  - Oedema peripheral [Unknown]
  - Right ventricular failure [Unknown]
  - Syncope [Unknown]
  - Blood creatinine increased [Unknown]
  - Fluid overload [Unknown]
  - Blood pressure decreased [Unknown]
